FAERS Safety Report 6899415-1 (Version None)
Quarter: 2010Q3

REPORT INFORMATION
  Report Type: 
  Country: None (occurrence: None)
  Receive Date: 20100803
  Receipt Date: 20090601
  Transmission Date: 20110219
  Serious: No
  Sender: FDA-Public Use
  Company Number: US-PFIZER INC-2009173591

PATIENT
  Sex: Female
  Weight: 71.202 kg

DRUGS (13)
  1. NEURONTIN [Suspect]
     Indication: PAIN
     Dosage: 300 MG, 2X/DAY
     Dates: start: 20080828
  2. VICODIN [Concomitant]
     Dosage: UNK
  3. HYDROCODONE BITARTRATE [Concomitant]
     Dosage: UNK
  4. ASPIRIN [Concomitant]
     Dosage: 81 MG, 1X/DAY
  5. CALCIUM MAGNESIUM ZINC [Concomitant]
     Dosage: [1000MG]/[400MG]/[12MG], 1X/DAY
  6. KLONOPIN [Concomitant]
     Dosage: 0.5 MG, 2X/DAY
  7. ZOLOFT [Concomitant]
     Dosage: 100MG PER DAY
  8. TRAZODONE [Concomitant]
     Dosage: 50 MG, 1X/DAY
  9. ACIPHEX [Concomitant]
     Dosage: 20 MG, 1X/DAY
  10. AMBIEN [Concomitant]
     Dosage: 10 MG, 1X/DAY
  11. SYNTHROID [Concomitant]
     Dosage: 88 UG, 1X/DAY
  12. VITAMIN D3 [Concomitant]
     Dosage: 1000 IU, UNK
  13. ALEVE (CAPLET) [Concomitant]
     Dosage: 220 MG, 3X/DAY

REACTIONS (2)
  - ARTHRALGIA [None]
  - CHROMATURIA [None]
